FAERS Safety Report 22292496 (Version 1)
Quarter: 2023Q2

REPORT INFORMATION
  Report Type: Other
  Country: US (occurrence: None)
  Receive Date: 20230508
  Receipt Date: 20230508
  Transmission Date: 20230721
  Serious: Yes (Hospitalization, Other)
  Sender: FDA-Public Use
  Company Number: US-ROCHE-3318527

PATIENT
  Age: 75 Year
  Sex: Female

DRUGS (2)
  1. OCREVUS [Suspect]
     Active Substance: OCRELIZUMAB
     Indication: Relapsing multiple sclerosis
     Dosage: INFUSE 600 MG EVERY 6 MONTH
     Route: 042
     Dates: start: 20200409
  2. OXYGEN [Concomitant]
     Active Substance: OXYGEN

REACTIONS (5)
  - Illness [Unknown]
  - Speech disorder [Unknown]
  - Dyspnoea [Unknown]
  - COVID-19 [Unknown]
  - Pneumonia [Unknown]
